FAERS Safety Report 25762703 (Version 2)
Quarter: 2025Q3

REPORT INFORMATION
  Report Type: Spontaneous
  Country: JP (occurrence: JP)
  Receive Date: 20250904
  Receipt Date: 20250926
  Transmission Date: 20251020
  Serious: Yes (Death)
  Sender: EISAI
  Company Number: JP-Eisai-202506839_HAL_P_1

PATIENT
  Age: 45 Year
  Sex: Female

DRUGS (1)
  1. ERIBULIN [Suspect]
     Active Substance: ERIBULIN
     Indication: Breast cancer
     Route: 041

REACTIONS (1)
  - Gastric varices haemorrhage [Fatal]
